FAERS Safety Report 7796936-4 (Version None)
Quarter: 2011Q4

REPORT INFORMATION
  Report Type: 
  Country: None (occurrence: None)
  Receive Date: 20111003
  Receipt Date: 20110916
  Transmission Date: 20120403
  Serious: Yes (Death)
  Sender: FDA-Public Use
  Company Number: FK201101975

PATIENT
  Age: 32 Year
  Sex: Female

DRUGS (1)
  1. LIDOCAINE [Suspect]
     Indication: ANALGESIC THERAPY
     Dosage: INTRAVENOUS (NOT OTHERWISE SPECIFIED)
     Route: 042

REACTIONS (4)
  - MALAISE [None]
  - POST PROCEDURAL COMPLICATION [None]
  - OVERDOSE [None]
  - RESPIRATORY ARREST [None]
